FAERS Safety Report 5688725-1 (Version None)
Quarter: 2008Q1

REPORT INFORMATION
  Report Type: 
  Country: None (occurrence: None)
  Receive Date: 20080331
  Receipt Date: 20080325
  Transmission Date: 20080703
  Serious: Yes (Hospitalization)
  Sender: FDA-Public Use
  Company Number: FR-MERCK-0801FRA00022

PATIENT
  Age: 83 Year
  Sex: Male

DRUGS (12)
  1. ZOCOR [Suspect]
     Route: 048
     Dates: start: 20071205
  2. FLUINDIONE [Suspect]
     Indication: ATRIAL FIBRILLATION
     Route: 048
     Dates: end: 20071204
  3. FLUINDIONE [Suspect]
     Route: 048
     Dates: start: 20071209, end: 20071210
  4. FLUINDIONE [Suspect]
     Route: 048
     Dates: start: 20071211, end: 20071211
  5. FLUINDIONE [Suspect]
     Route: 048
     Dates: start: 20071212, end: 20071213
  6. DIPYRIDAMOLE [Suspect]
     Indication: ATRIAL FIBRILLATION
     Route: 048
  7. ALLOPURINOL [Suspect]
     Route: 048
     Dates: start: 20071204
  8. AMOXICILLIN [Suspect]
     Indication: ENDOCARDITIS
     Route: 048
     Dates: start: 20071201, end: 20071204
  9. ZOLPIDEM TARTRATE [Concomitant]
     Route: 048
     Dates: start: 20071201, end: 20071205
  10. ACEPROMETAZINE MALEATE AND MEPROBAMATE [Concomitant]
     Route: 048
     Dates: start: 20071205
  11. IRBESARTAN [Concomitant]
     Route: 048
     Dates: start: 20071202
  12. FUROSEMIDE [Concomitant]
     Route: 048
     Dates: start: 20071202

REACTIONS (4)
  - ENDOCARDITIS [None]
  - EPISTAXIS [None]
  - HAEMARTHROSIS [None]
  - INTERNATIONAL NORMALISED RATIO INCREASED [None]
